FAERS Safety Report 5110567-6 (Version None)
Quarter: 2006Q3

REPORT INFORMATION
  Report Type: 
  Country: None (occurrence: None)
  Receive Date: 20060918
  Receipt Date: 20060830
  Transmission Date: 20061208
  Serious: Yes (Other)
  Sender: FDA-Public Use
  Company Number: 8017351

PATIENT
  Age: 49 Year
  Sex: Female

DRUGS (8)
  1. KEPPRA [Suspect]
     Indication: CONVULSION
     Dosage: 500 MG PO
     Route: 048
     Dates: start: 20060609, end: 20060610
  2. KEPPRA [Suspect]
     Indication: CONVULSION
     Dosage: 500 MG 2/D PO
     Route: 048
     Dates: start: 20060611, end: 20060611
  3. KEPPRA [Suspect]
     Indication: CONVULSION
     Dosage: 500 MG PO
     Route: 048
     Dates: start: 20060612
  4. KLONOPIN [Concomitant]
  5. ELAVIL [Concomitant]
  6. PROZAC [Concomitant]
  7. DEXADRIN [Concomitant]
  8. VICODIN [Concomitant]

REACTIONS (7)
  - CONVULSION [None]
  - DRUG DOSE OMISSION [None]
  - FALL [None]
  - FATIGUE [None]
  - HYPERSOMNIA [None]
  - LOSS OF CONSCIOUSNESS [None]
  - PETIT MAL EPILEPSY [None]
